FAERS Safety Report 6393289-3 (Version None)
Quarter: 2009Q4

REPORT INFORMATION
  Report Type: 
  Country: None (occurrence: None)
  Receive Date: 20091008
  Receipt Date: 20090924
  Transmission Date: 20100525
  Serious: Yes (Other)
  Sender: FDA-Public Use
  Company Number: PHHY2009CA33133

PATIENT
  Sex: Female

DRUGS (6)
  1. ACLASTA [Suspect]
     Indication: OSTEOPOROSIS
     Dosage: 5 MG ONCE YEARLY
     Dates: start: 20080908
  2. METHOTREXATE [Concomitant]
  3. HYDROXYZINE [Concomitant]
  4. DILTIAZEM [Concomitant]
     Dosage: 360 MG, UNK
  5. AVAPRO [Concomitant]
     Dosage: 300 MG, UNK
  6. FUROSEMIDE [Concomitant]

REACTIONS (4)
  - ANKLE FRACTURE [None]
  - FALL [None]
  - HYPOGLYCAEMIA [None]
  - LOWER LIMB FRACTURE [None]
